FAERS Safety Report 7940283-4 (Version None)
Quarter: 2011Q4

REPORT INFORMATION
  Report Type: 
  Country: None (occurrence: None)
  Receive Date: 20111126
  Receipt Date: 20110926
  Transmission Date: 20120403
  Serious: No
  Sender: FDA-Public Use
  Company Number: US-BAYER-2011-093523

PATIENT

DRUGS (2)
  1. ALEVE (CAPLET) [Suspect]
     Indication: PREMENSTRUAL SYNDROME
  2. IBUPROFEN (ADVIL) [Concomitant]
     Indication: PREMENSTRUAL SYNDROME

REACTIONS (6)
  - ABDOMINAL DISTENSION [None]
  - RASH [None]
  - HYPERPHAGIA [None]
  - IRRITABILITY [None]
  - PREMENSTRUAL SYNDROME [None]
  - BREAST TENDERNESS [None]
